FAERS Safety Report 5065654-8 (Version None)
Quarter: 2006Q3

REPORT INFORMATION
  Report Type: 
  Country: None (occurrence: None)
  Receive Date: 20060731
  Receipt Date: 20060718
  Transmission Date: 20061208
  Serious: Yes (Hospitalization, Other)
  Sender: FDA-Public Use
  Company Number: US-ABBOTT-06P-163-0338292-00

PATIENT
  Sex: Female
  Weight: 54.5 kg

DRUGS (6)
  1. DILAUDID [Suspect]
     Indication: PAIN
  2. PROGESTERONE [Suspect]
     Indication: MENSTRUAL DISORDER
     Route: 048
     Dates: start: 20020101
  3. PROGESTERONE [Suspect]
     Indication: UTERINE LEIOMYOMA
     Route: 048
     Dates: start: 20060601, end: 20060602
  4. PROGESTERONE [Suspect]
     Indication: HAEMORRHAGE
  5. ALPRAZOLAM [Suspect]
     Indication: ANXIETY DISORDER
     Route: 048
  6. OXYCOCET [Suspect]
     Indication: PAIN
     Route: 048

REACTIONS (2)
  - DIZZINESS [None]
  - LOSS OF CONSCIOUSNESS [None]
